FAERS Safety Report 8615884-0 (Version None)
Quarter: 2012Q3

REPORT INFORMATION
  Report Type: 
  Country: None (occurrence: None)
  Receive Date: 20120823
  Receipt Date: 20120816
  Transmission Date: 20120928
  Serious: Yes (Hospitalization, Congenital Anomaly)
  Sender: FDA-Public Use
  Company Number: CA-GLAXOSMITHKLINE-A0688758A

PATIENT
  Sex: Male
  Weight: 2.8 kg

DRUGS (4)
  1. SYNTHROID [Concomitant]
     Indication: THYROID DISORDER
     Route: 064
     Dates: start: 20020101
  2. PAROXETINE [Suspect]
     Indication: ANXIETY
     Dosage: 20MG PER DAY
     Route: 064
     Dates: start: 20040505, end: 20040812
  3. MATERNA [Concomitant]
     Route: 064
     Dates: start: 20031001
  4. PAXIL [Suspect]
     Indication: ANXIETY
     Dosage: 20MG PER DAY
     Route: 064
     Dates: start: 20031026, end: 20031125

REACTIONS (19)
  - HYPOSPADIAS [None]
  - INFERTILITY MALE [None]
  - MYELODYSPLASTIC SYNDROME [None]
  - DEVELOPMENTAL DELAY [None]
  - WHEELCHAIR USER [None]
  - ABASIA [None]
  - FOETAL EXPOSURE DURING PREGNANCY [None]
  - EYELID PTOSIS [None]
  - CRYPTORCHISM [None]
  - GENITALIA EXTERNAL AMBIGUOUS [None]
  - ANAL ATRESIA [None]
  - CONGENITAL SCOLIOSIS [None]
  - ARNOLD-CHIARI MALFORMATION [None]
  - TALIPES [None]
  - SPINA BIFIDA [None]
  - APHASIA [None]
  - CONGENITAL HIP DEFORMITY [None]
  - NEURAL TUBE DEFECT [None]
  - HEART DISEASE CONGENITAL [None]
